FAERS Safety Report 6042423-3 (Version None)
Quarter: 2009Q1

REPORT INFORMATION
  Report Type: 
  Country: None (occurrence: None)
  Receive Date: 20090116
  Receipt Date: 20090106
  Transmission Date: 20090719
  Serious: Yes (Hospitalization)
  Sender: FDA-Public Use
  Company Number: US-PFIZER INC-2009151747

PATIENT
  Age: 45 Year
  Sex: Female

DRUGS (1)
  1. METRONIDAZOLE AND METRONIDAZOLE BENZOATE AND METRONIDAZOLE HYDROCHLORI [Suspect]
     Indication: INFECTION
     Dosage: 750 MG, 3X/DAY

REACTIONS (3)
  - ENCEPHALOPATHY [None]
  - NERVOUS SYSTEM DISORDER [None]
  - PERIPHERAL SENSORY NEUROPATHY [None]
